FAERS Safety Report 4904518-4 (Version None)
Quarter: 2006Q1

REPORT INFORMATION
  Report Type: 
  Country: None (occurrence: None)
  Receive Date: 20060208
  Receipt Date: 20050913
  Transmission Date: 20060701
  Serious: No
  Sender: FDA-Public Use
  Company Number: US-GLAXOSMITHKLINE-A0574069A

PATIENT
  Age: 61 Year
  Sex: Female

DRUGS (24)
  1. PAXIL [Suspect]
     Indication: DEPRESSION
     Dosage: 30MG PER DAY
     Route: 048
     Dates: start: 19950101
  2. PAXIL CR [Suspect]
     Route: 048
  3. EFFEXOR [Suspect]
     Route: 065
  4. ALLEGRA [Concomitant]
  5. LEVOTHYROXINE SODIUM [Concomitant]
  6. ALPRAZOLAM [Concomitant]
  7. EX-LAX [Concomitant]
  8. MULTI-VITAMIN [Concomitant]
  9. VITAMIN B COMPLEX CAP [Concomitant]
  10. BETA-CAROTENE [Concomitant]
  11. PANTOTHENIC ACID [Concomitant]
  12. ASCORBIC ACID [Concomitant]
  13. VITAMIN E [Concomitant]
  14. L-LYSINE [Concomitant]
  15. CALCIUM GLUCONATE [Concomitant]
  16. MAGNESIUM [Concomitant]
  17. ZINC [Concomitant]
  18. MANGANESE [Concomitant]
  19. GARLIC [Concomitant]
  20. SELENIUM SULFIDE [Concomitant]
  21. FOLIC ACID [Concomitant]
  22. LACTAID [Concomitant]
  23. RESCUE REMEDY [Concomitant]
  24. PEPTO-BISMOL [Concomitant]

REACTIONS (8)
  - AGITATION [None]
  - CRYING [None]
  - DIARRHOEA [None]
  - DRUG INEFFECTIVE [None]
  - DRUG WITHDRAWAL SYNDROME [None]
  - HYPERHIDROSIS [None]
  - NAUSEA [None]
  - WEIGHT DECREASED [None]
